FAERS Safety Report 16969471 (Version 1)
Quarter: 2019Q4

REPORT INFORMATION
  Report Type: Spontaneous
  Country: GB (occurrence: GB)
  Receive Date: 20191029
  Receipt Date: 20191029
  Transmission Date: 20200122
  Serious: Yes (Disabling, Other)
  Sender: FDA-Public Use
  Company Number: GB-TEVA-2019-GB-1128456

PATIENT
  Age: 56 Year
  Sex: Male
  Weight: 67 kg

DRUGS (2)
  1. MELOXICAM. [Concomitant]
     Active Substance: MELOXICAM
  2. LEFLUNOMIDE. [Suspect]
     Active Substance: LEFLUNOMIDE
     Indication: PSORIATIC ARTHROPATHY
     Dosage: 20 MG
     Route: 048
     Dates: start: 20180726, end: 20190421

REACTIONS (3)
  - Tendon rupture [Recovering/Resolving]
  - Tendonitis [Unknown]
  - Tendon pain [Recovered/Resolved]

NARRATIVE: CASE EVENT DATE: 20181201
